FAERS Safety Report 5810852-6 (Version None)
Quarter: 2008Q3

REPORT INFORMATION
  Report Type: 
  Country: None (occurrence: None)
  Receive Date: 20080715
  Receipt Date: 20080709
  Transmission Date: 20090109
  Serious: Yes (Hospitalization, Other)
  Sender: FDA-Public Use
  Company Number: US-ALLERGAN-0808502US

PATIENT
  Sex: Female

DRUGS (2)
  1. BOTOX [Suspect]
     Indication: HYPERHIDROSIS
     Dosage: UNK, SINGLE
     Dates: start: 20080101
  2. BOTOX [Suspect]
     Dosage: UNK, SINGLE
     Dates: start: 20070101

REACTIONS (4)
  - DYSPNOEA [None]
  - INFLUENZA LIKE ILLNESS [None]
  - MUSCULAR WEAKNESS [None]
  - PARAESTHESIA [None]
